FAERS Safety Report 5661829-5 (Version None)
Quarter: 2008Q1

REPORT INFORMATION
  Report Type: 
  Country: None (occurrence: None)
  Receive Date: 20080229
  Receipt Date: 20080226
  Transmission Date: 20080703
  Serious: Yes (Other)
  Sender: FDA-Public Use
  Company Number: A0694061A

PATIENT
  Age: 29 Year
  Sex: Male

DRUGS (1)
  1. UREA PEROXIDE [Suspect]
     Indication: CERUMEN REMOVAL
     Dosage: AURAL

REACTIONS (2)
  - DEAFNESS UNILATERAL [None]
  - PHARMACEUTICAL PRODUCT COMPLAINT [None]
